FAERS Safety Report 7540551-4 (Version None)
Quarter: 2011Q2

REPORT INFORMATION
  Report Type: 
  Country: None (occurrence: None)
  Receive Date: 20110610
  Receipt Date: 20110531
  Transmission Date: 20111010
  Serious: Yes (Death, Hospitalization)
  Sender: FDA-Public Use
  Company Number: B0723016A

PATIENT
  Age: 77 Year
  Sex: Female

DRUGS (15)
  1. DEXAMETHASONE [Concomitant]
     Dates: start: 20100801, end: 20110101
  2. FERROUS SULFATE TAB [Concomitant]
  3. CRESTOR [Concomitant]
  4. GLYBURIDE [Concomitant]
  5. ALKERAN [Suspect]
     Dates: start: 20070101, end: 20080101
  6. REVLIMID [Suspect]
     Dosage: 10MG PER DAY
     Route: 048
     Dates: start: 20100802, end: 20100823
  7. VELCADE [Suspect]
     Route: 065
     Dates: start: 20080101, end: 20110101
  8. LANTUS [Concomitant]
  9. HYTACAND [Concomitant]
  10. ZINC CHLORIDE [Concomitant]
  11. PLAVIX [Concomitant]
  12. PREDNISONE [Concomitant]
     Dates: start: 20070101, end: 20080101
  13. HYPERIUM [Concomitant]
  14. AMLODIPINE [Concomitant]
  15. NEXIUM [Concomitant]

REACTIONS (4)
  - GENERAL PHYSICAL HEALTH DETERIORATION [None]
  - THROMBOCYTOPENIA [None]
  - ACUTE MYELOID LEUKAEMIA [None]
  - ANAEMIA [None]
